FAERS Safety Report 6871035-4 (Version None)
Quarter: 2010Q3

REPORT INFORMATION
  Report Type: 
  Country: None (occurrence: None)
  Receive Date: 20100723
  Receipt Date: 20100720
  Transmission Date: 20110219
  Serious: Yes (Hospitalization)
  Sender: FDA-Public Use
  Company Number: US-GILEAD-2010-0030526

PATIENT
  Age: 73 Year
  Sex: Male
  Weight: 122.58 kg

DRUGS (20)
  1. LETAIRIS [Suspect]
     Indication: PULMONARY ARTERIAL HYPERTENSION
     Route: 048
     Dates: start: 20100209
  2. OXYGEN [Concomitant]
  3. ASPIRIN [Concomitant]
  4. LASIX [Concomitant]
  5. LISINOPRIL [Concomitant]
  6. INDOMETHACIN [Concomitant]
  7. IMDUR [Concomitant]
  8. SIMVASTATIN [Concomitant]
  9. FORADIL [Concomitant]
  10. SPIRIVA [Concomitant]
  11. PROSCAR [Concomitant]
  12. GLIPIZIDE [Concomitant]
  13. METFORMIN HCL [Concomitant]
  14. ASMANEX TWISTHALER [Concomitant]
  15. COLACE [Concomitant]
  16. POTASSIUM CHLORIDE [Concomitant]
  17. NITROGLYCERIN [Concomitant]
  18. CYANOCOBALAMIN [Concomitant]
  19. FREESTYLE TEST STRIPS [Concomitant]
  20. LANCETS [Concomitant]

REACTIONS (1)
  - BLOOD POTASSIUM INCREASED [None]
